FAERS Safety Report 16300056 (Version 2)
Quarter: 2019Q2

REPORT INFORMATION
  Report Type: Spontaneous
  Country: US (occurrence: US)
  Receive Date: 20190510
  Receipt Date: 20190517
  Transmission Date: 20190711
  Serious: Yes (Hospitalization)
  Sender: FDA-Public Use
  Company Number: US-PFIZER INC-2019192934

PATIENT
  Age: 93 Year
  Sex: Male

DRUGS (2)
  1. AMLODIPINE [Concomitant]
     Active Substance: AMLODIPINE BESYLATE
     Indication: HYPERTENSION
     Dosage: UNK
  2. PROPANOLOL HCL [Suspect]
     Active Substance: PROPRANOLOL HYDROCHLORIDE
     Indication: ESSENTIAL TREMOR
     Dosage: UNK (LOW DOSE)

REACTIONS (7)
  - Hallucination, visual [Recovered/Resolved]
  - Delirium [Recovered/Resolved]
  - Hypotension [Recovered/Resolved]
  - Muscular weakness [Recovered/Resolved]
  - Acute kidney injury [Recovered/Resolved]
  - Sinus bradycardia [Recovered/Resolved]
  - Fall [Recovered/Resolved]
